FAERS Safety Report 5040643-8 (Version None)
Quarter: 2006Q2

REPORT INFORMATION
  Report Type: 
  Country: None (occurrence: None)
  Receive Date: 20060630
  Receipt Date: 20060608
  Transmission Date: 20061013
  Serious: Yes (Death)
  Sender: FDA-Public Use
  Company Number: DE-MERCK-0606DEU00032

PATIENT
  Age: 70 Year
  Sex: Male

DRUGS (11)
  1. CANCIDAS [Suspect]
     Indication: CANDIDA SEPSIS
     Route: 065
     Dates: start: 20050730, end: 20050908
  2. CANCIDAS [Suspect]
     Indication: ENDOCARDITIS
     Route: 065
     Dates: start: 20050730, end: 20050908
  3. BELOC-ZOK [Concomitant]
     Route: 065
  4. LANICOR [Concomitant]
     Route: 065
  5. HYDROCORTISONE [Concomitant]
     Route: 065
  6. NOVALGIN [Concomitant]
     Route: 065
  7. RANITIDINE HYDROCHLORIDE [Concomitant]
     Route: 065
  8. VOLTAREN [Concomitant]
     Route: 065
  9. REFOBACIN [Concomitant]
     Route: 065
  10. STAPHYLEX [Concomitant]
     Route: 065
     Dates: start: 20050719, end: 20050825
  11. TAVANIC [Concomitant]
     Route: 065
     Dates: start: 20050727, end: 20050803

REACTIONS (3)
  - CANDIDA SEPSIS [None]
  - DRUG INEFFECTIVE [None]
  - ENDOCARDITIS [None]
